FAERS Safety Report 17552203 (Version 1)
Quarter: 2020Q1

REPORT INFORMATION
  Report Type: Spontaneous
  Country: US (occurrence: US)
  Receive Date: 20200317
  Receipt Date: 20200317
  Transmission Date: 20200409
  Serious: No
  Sender: FDA-Public Use
  Company Number: US-PERRIGO-19US015461

PATIENT
  Sex: Female
  Weight: 120.18 kg

DRUGS (1)
  1. NICOTINE POLACRILEX [Suspect]
     Active Substance: NICOTINE
     Indication: SMOKING CESSATION THERAPY
     Dosage: 2 MG, APPROX. 16 TIMES DAILY
     Route: 002
     Dates: start: 2017

REACTIONS (3)
  - Oropharyngeal discomfort [Unknown]
  - Nicotine dependence [Unknown]
  - Cough [Unknown]

NARRATIVE: CASE EVENT DATE: 2017
